FAERS Safety Report 12507850 (Version 5)
Quarter: 2018Q4

REPORT INFORMATION
  Report Type: Report from Study
  Country: FR (occurrence: FR)
  Receive Date: 20160629
  Receipt Date: 20181207
  Transmission Date: 20190204
  Serious: Yes (Hospitalization)
  Sender: FDA-Public Use
  Company Number: FR-ROCHE-1677932

PATIENT
  Age: 69 Year
  Sex: Female
  Weight: 48.8 kg

DRUGS (12)
  1. PHOCYTAN [Concomitant]
     Active Substance: .ALPHA.-GLUCOSE-1-PHOSPHATE
     Indication: HYPONATRAEMIA
     Route: 042
     Dates: start: 20151222
  2. BARACLUDE [Concomitant]
     Active Substance: ENTECAVIR
     Indication: CHRONIC HEPATITIS B
     Route: 048
     Dates: start: 201504
  3. TAZOCILLINE [Concomitant]
     Active Substance: PIPERACILLIN SODIUM\TAZOBACTAM SODIUM
     Indication: PYREXIA
     Route: 042
     Dates: start: 20151215, end: 20151223
  4. TRAMADOL. [Concomitant]
     Active Substance: TRAMADOL
     Indication: HEPATIC PAIN
     Route: 042
     Dates: start: 20151217
  5. ATEZOLIZUMAB. [Suspect]
     Active Substance: ATEZOLIZUMAB
     Indication: NEOPLASM
     Dosage: MOST RECENT DOSE 1200 MG OF ATEZOLIZUMAB WAS ADMINISTERED ON 24/NOV/2015 PRIOR TO WORSENING HEPATIC
     Route: 042
     Dates: start: 20151103
  6. PARACETAMOL [Concomitant]
     Active Substance: ACETAMINOPHEN
     Indication: BACK PAIN
     Route: 048
     Dates: start: 201510, end: 20151215
  7. TRAMADOL. [Concomitant]
     Active Substance: TRAMADOL
     Route: 048
     Dates: start: 20160202
  8. PARACETAMOL [Concomitant]
     Active Substance: ACETAMINOPHEN
     Indication: TUMOUR PAIN
     Route: 048
     Dates: start: 20151026, end: 20151214
  9. ACUPAN [Concomitant]
     Active Substance: NEFOPAM HYDROCHLORIDE
     Indication: HEPATIC PAIN
     Route: 042
     Dates: start: 20151215
  10. TIENAM [Concomitant]
     Active Substance: CILASTATIN SODIUM\IMIPENEM
     Indication: PYREXIA
     Route: 042
     Dates: start: 20151218
  11. TRAMADOL LP [Concomitant]
     Active Substance: TRAMADOL HYDROCHLORIDE
     Indication: HEPATIC PAIN
     Route: 048
     Dates: start: 20160202
  12. MGSO2 (MAGNESIUM HYPOSULFITE) [Concomitant]
     Indication: HYPOMAGNESAEMIA
     Route: 042
     Dates: start: 20151222

REACTIONS (2)
  - Hepatic pain [Not Recovered/Not Resolved]
  - Hepatocellular injury [Not Recovered/Not Resolved]

NARRATIVE: CASE EVENT DATE: 20151215
